FAERS Safety Report 7237228-1 (Version None)
Quarter: 2011Q1

REPORT INFORMATION
  Report Type: 
  Country: None (occurrence: None)
  Receive Date: 20110111
  Receipt Date: 20101231
  Transmission Date: 20110831
  Serious: Yes (Death)
  Sender: FDA-Public Use
  Company Number: IDA-00477

PATIENT
  Age: 17 Year
  Sex: Male

DRUGS (6)
  1. FEXOFENADINE HCL [Suspect]
     Dosage: DAILY DOSE: ROUTE OF ADMINISTRATION: ORAL FORMULATION
     Route: 048
  2. LOVASTATIN [Suspect]
     Dosage: DAILY DOSE: ROUTE OF ADMINISTRATION: ORAL FORMULATION
     Route: 048
  3. PROPRANOLOL [Suspect]
     Dosage: DAILY DOSE: ROUTE OF ADMINISTRATION: ORAL FORMULATION
     Route: 048
  4. GABAPENTIN [Suspect]
     Dosage: DAILY DOSE: ROUTE OF ADMINISTRATION: ORAL FORMULATION
     Route: 048
  5. METHADONE HCL [Suspect]
     Dosage: DAILY DOSE: ROUTE OF ADMINISTRATION: ORAL FORMULATION
     Route: 048
  6. VENLAFAXINE [Suspect]
     Dosage: DAILY DOSE: ROUTE OF ADMINISTRATION: ORAL FORMULATION
     Route: 048

REACTIONS (4)
  - COMPLETED SUICIDE [None]
  - TOXICITY TO VARIOUS AGENTS [None]
  - CARDIAC ARREST [None]
  - RESPIRATORY ARREST [None]
